FAERS Safety Report 9813014 (Version 1)
Quarter: 2014Q1

REPORT INFORMATION
  Report Type: Spontaneous
  Country: PL (occurrence: PL)
  Receive Date: 20140113
  Receipt Date: 20140113
  Transmission Date: 20141002
  Serious: Yes (Hospitalization, Other)
  Sender: FDA-Public Use
  Company Number: PL-ASTELLAS-2014EU000088

PATIENT
  Age: 24 Year
  Sex: Female

DRUGS (7)
  1. PROGRAF [Suspect]
     Indication: IMMUNOSUPPRESSION
     Dosage: 2 MG, BID
     Route: 065
  2. PROGRAF [Suspect]
     Dosage: 3 MG, TID
     Route: 065
  3. PREDNISOLON /00016201/ [Suspect]
     Indication: IMMUNOSUPPRESSION
     Dosage: 7.5 MG, UNKNOWN/D
     Route: 065
  4. VERAPAMIL [Concomitant]
     Dosage: UNK
     Route: 065
  5. DROTAVERINE [Concomitant]
     Dosage: UNK
     Route: 065
  6. URSODEOXYCHOLIC ACID [Concomitant]
     Dosage: UNK
     Route: 065
  7. SPIRONOLACTONE [Concomitant]
     Dosage: UNK
     Route: 065

REACTIONS (7)
  - Exposure during pregnancy [Unknown]
  - Biliary tract disorder [Unknown]
  - Hypertension [Unknown]
  - Cholestasis of pregnancy [Unknown]
  - Anaemia [Unknown]
  - Premature rupture of membranes [Unknown]
  - Premature delivery [Unknown]
